FAERS Safety Report 15860143 (Version 2)
Quarter: 2019Q1

REPORT INFORMATION
  Report Type: Spontaneous
  Country: JP (occurrence: JP)
  Receive Date: 20190123
  Receipt Date: 20190205
  Transmission Date: 20190417
  Serious: Yes (Death, Other)
  Sender: FDA-Public Use
  Company Number: JP-TAKEDA-2019TJP000958AA

PATIENT
  Age: 71 Year
  Sex: Male

DRUGS (2)
  1. NESINA [Suspect]
     Active Substance: ALOGLIPTIN BENZOATE
     Indication: TYPE 2 DIABETES MELLITUS
     Dosage: 25 MILLIGRAM
     Route: 048
     Dates: start: 201306
  2. INSULIN [Concomitant]
     Active Substance: INSULIN NOS
     Dosage: 36 INTERNATIONAL UNIT
     Route: 065
     Dates: start: 201202

REACTIONS (5)
  - Disease progression [Fatal]
  - Pancreatic carcinoma [Unknown]
  - Postoperative abscess [Unknown]
  - Pancreatic carcinoma recurrent [Fatal]
  - Asthenia [Fatal]

NARRATIVE: CASE EVENT DATE: 201406
